FAERS Safety Report 9630737 (Version 1)
Quarter: 2013Q4

REPORT INFORMATION
  Report Type: Spontaneous
  Country: US (occurrence: None)
  Receive Date: 20131015
  Receipt Date: 20131015
  Transmission Date: 20140711
  Serious: Yes (Hospitalization)
  Sender: FDA-Public Use
  Company Number: 2013AP008816

PATIENT
  Sex: Male
  Weight: 80.7 kg

DRUGS (1)
  1. FERRIPROX [Suspect]
     Indication: NON-HODGKIN^S LYMPHOMA
     Route: 048
     Dates: end: 20130922

REACTIONS (1)
  - Cardiac failure congestive [None]
